FAERS Safety Report 12851602 (Version 1)
Quarter: 2016Q4

REPORT INFORMATION
  Report Type: Spontaneous
  Country: FR (occurrence: FR)
  Receive Date: 20161016
  Receipt Date: 20161016
  Transmission Date: 20170207
  Serious: Yes (Life-Threatening, Other)
  Sender: FDA-Public Use
  Company Number: FR-BAXTER-2016BAX051266

PATIENT
  Age: 53 Year
  Sex: Female

DRUGS (23)
  1. METHOTREXATE. [Suspect]
     Active Substance: METHOTREXATE
     Indication: PRODUCT USED FOR UNKNOWN INDICATION
     Dosage: HIGH DOSE, R-CHOP
     Route: 065
     Dates: start: 201604
  2. CYTARABINE. [Suspect]
     Active Substance: CYTARABINE
     Indication: PRODUCT USED FOR UNKNOWN INDICATION
     Dosage: HIGH DOSE, 2 CATCH UP COURSES OF RDHAOX
     Route: 065
  3. CELLTOP 100 MG/5 ML, SOLUTION INJECTABLE POUR PERFUSION [Suspect]
     Active Substance: ETOPOSIDE
     Dosage: THIRD LINE TREATMENT WITH RICE (RITUXIMAB, IFOSFAMIDE, CARBOPLATIN, ETOPOSIDE)
     Route: 042
     Dates: start: 20160917, end: 20160917
  4. HYDROXYDAUNORUBICIN [Suspect]
     Active Substance: DOXORUBICIN
     Indication: PRODUCT USED FOR UNKNOWN INDICATION
     Dosage: R-CHOP
     Route: 065
     Dates: start: 201604
  5. HYDROXYDAUNORUBICIN [Suspect]
     Active Substance: DOXORUBICIN
     Dosage: R-CHOP
     Route: 065
     Dates: start: 201605
  6. VINCRISTINE [Suspect]
     Active Substance: VINCRISTINE
     Indication: PRODUCT USED FOR UNKNOWN INDICATION
     Dosage: R-CHOP
     Route: 065
     Dates: start: 201604
  7. RITUXIMAB [Suspect]
     Active Substance: RITUXIMAB
     Dosage: R-CHOP
     Route: 065
     Dates: start: 201605
  8. VINCRISTINE [Suspect]
     Active Substance: VINCRISTINE
     Dosage: R-CHOP
     Route: 065
     Dates: start: 201605
  9. METHOTREXATE. [Suspect]
     Active Substance: METHOTREXATE
     Dosage: HIGH DOSE, R-CHOP
     Route: 065
     Dates: start: 201605
  10. OXALIPLATIN. [Suspect]
     Active Substance: OXALIPLATIN
     Indication: PRODUCT USED FOR UNKNOWN INDICATION
     Dosage: 2 CATCH UP COURSES OF RDHAOX
     Route: 065
  11. HOLOXAN 2000 MG, POUDRE POUR USAGE PARENT?RAL [Suspect]
     Active Substance: IFOSFAMIDE
     Indication: B-CELL LYMPHOMA
     Dosage: THIRD LINE TREATMENT WITH RICE (RITUXIMAB, IFOSFAMIDE, CARBOPLATIN, ETOPOSIDE)
     Route: 042
     Dates: start: 20160917, end: 20160917
  12. DEXAMETHASONE. [Suspect]
     Active Substance: DEXAMETHASONE
     Indication: PRODUCT USED FOR UNKNOWN INDICATION
     Dosage: 2 CATCH UP COURSES OF RDHAOX
     Route: 065
  13. ENDOXAN 1000 MG, POUDRE POUR SOLUTION INJECTABLE [Suspect]
     Active Substance: CYCLOPHOSPHAMIDE
     Dosage: R-CHOP
     Route: 065
     Dates: start: 201605
  14. PREDNISONE. [Suspect]
     Active Substance: PREDNISONE
     Indication: PRODUCT USED FOR UNKNOWN INDICATION
     Dosage: R-CHOP
     Route: 065
     Dates: start: 201604
  15. ONDANSETRON [Suspect]
     Active Substance: ONDANSETRON
     Indication: PROPHYLAXIS OF NAUSEA AND VOMITING
     Route: 065
     Dates: start: 201609
  16. ENDOXAN 1000 MG, POUDRE POUR SOLUTION INJECTABLE [Suspect]
     Active Substance: CYCLOPHOSPHAMIDE
     Indication: PRODUCT USED FOR UNKNOWN INDICATION
     Dosage: R-CHOP
     Route: 065
     Dates: start: 201604
  17. CELLTOP 100 MG/5 ML, SOLUTION INJECTABLE POUR PERFUSION [Suspect]
     Active Substance: ETOPOSIDE
     Dosage: THIRD LINE TREATMENT WITH RICE (RITUXIMAB, IFOSFAMIDE, CARBOPLATIN, ETOPOSIDE)
     Route: 042
     Dates: start: 20160918, end: 20160918
  18. RITUXIMAB [Suspect]
     Active Substance: RITUXIMAB
     Indication: PRODUCT USED FOR UNKNOWN INDICATION
     Dosage: R-CHOP
     Route: 065
     Dates: start: 201604
  19. RITUXIMAB [Suspect]
     Active Substance: RITUXIMAB
     Dosage: 2 CATCH UP COURSES OF RDHAOX
     Route: 065
  20. PREDNISONE. [Suspect]
     Active Substance: PREDNISONE
     Dosage: R-CHOP
     Route: 065
     Dates: start: 201605
  21. HEPARIN [Suspect]
     Active Substance: HEPARIN SODIUM
     Indication: ANTICOAGULANT THERAPY
     Dosage: CURATIVE VIA A SYRINGE PUMP
     Route: 065
     Dates: start: 20160916
  22. HEPARIN [Suspect]
     Active Substance: HEPARIN SODIUM
     Dosage: DOSE REDUCED, CURATIVE VIA A SYRINGE PUMP
     Route: 065
     Dates: start: 20160918
  23. CELLTOP 100 MG/5 ML, SOLUTION INJECTABLE POUR PERFUSION [Suspect]
     Active Substance: ETOPOSIDE
     Indication: PRODUCT USED FOR UNKNOWN INDICATION
     Dosage: THIRD LINE TREATMENT WITH RICE (RITUXIMAB, IFOSFAMIDE, CARBOPLATIN, ETOPOSIDE)
     Route: 042
     Dates: start: 20160916, end: 20160916

REACTIONS (17)
  - Renal vein thrombosis [Unknown]
  - Spinal compression fracture [Unknown]
  - Anuria [Unknown]
  - Retroperitoneal lymphadenopathy [Unknown]
  - Vena cava thrombosis [Unknown]
  - Malignant mesenteric neoplasm [Unknown]
  - Skin mass [Unknown]
  - Pneumothorax [Unknown]
  - Abdominal mass [Unknown]
  - Drug resistance [Unknown]
  - Retroperitoneal mass [Unknown]
  - Pleural effusion [Unknown]
  - Lymphadenopathy [Unknown]
  - Encephalopathy [Recovered/Resolved]
  - Hypoventilation [Unknown]
  - Metastasis [Unknown]
  - Pulmonary embolism [Unknown]

NARRATIVE: CASE EVENT DATE: 20160916
